FAERS Safety Report 7889541-2 (Version None)
Quarter: 2011Q4

REPORT INFORMATION
  Report Type: 
  Country: None (occurrence: None)
  Receive Date: 20111103
  Receipt Date: 20101018
  Transmission Date: 20120403
  Serious: No
  Sender: FDA-Public Use
  Company Number: US-BRISTOL-MYERS SQUIBB COMPANY-15320724

PATIENT
  Age: 61 Year
  Sex: Female

DRUGS (1)
  1. KENALOG-40 [Suspect]
     Indication: OSTEOARTHRITIS
     Dosage: RECEIVED TWO INJECTIONS  20MG: ONE USE
     Route: 014
     Dates: start: 20100819

REACTIONS (3)
  - POSTMENOPAUSAL HAEMORRHAGE [None]
  - HYPERTENSION [None]
  - FACIAL PAIN [None]
